FAERS Safety Report 9773598 (Version 4)
Quarter: 2014Q1

REPORT INFORMATION
  Report Type: Spontaneous
  Country: US (occurrence: US)
  Receive Date: 20131219
  Receipt Date: 20140122
  Transmission Date: 20141002
  Serious: Yes (Hospitalization, Other)
  Sender: FDA-Public Use
  Company Number: US-BAXTER-2013BAX050094

PATIENT
  Sex: Male

DRUGS (4)
  1. DIANEAL LOW CALCIUM [Suspect]
     Indication: RENAL FAILURE CHRONIC
     Route: 033
  2. DIANEAL LOW CALCIUM [Suspect]
     Route: 033
  3. DIANEAL LOW CALCIUM [Suspect]
     Indication: RENAL FAILURE CHRONIC
     Route: 033
  4. ASPIRIN [Suspect]
     Indication: PRODUCT USED FOR UNKNOWN INDICATION
     Route: 065

REACTIONS (7)
  - Arthralgia [Not Recovered/Not Resolved]
  - Echocardiogram abnormal [Recovering/Resolving]
  - Atrioventricular block [Recovered/Resolved]
  - Heart rate increased [Recovered/Resolved]
  - Blood pressure fluctuation [Recovered/Resolved]
  - Dehydration [Recovered/Resolved]
  - Melaena [Recovered/Resolved]
